FAERS Safety Report 7270202-8 (Version None)
Quarter: 2011Q1

REPORT INFORMATION
  Report Type: 
  Country: None (occurrence: None)
  Receive Date: 20110125
  Receipt Date: 20110120
  Transmission Date: 20110831
  Serious: Yes (Other)
  Sender: FDA-Public Use
  Company Number: 001122

PATIENT
  Sex: Female

DRUGS (3)
  1. LACOSAMIDE [Suspect]
     Indication: EPILEPSY
     Dosage: (150 MG BID)
     Dates: start: 20090301
  2. KEPPRA [Suspect]
     Dosage: (1500 MG BID)
     Dates: start: 20070101
  3. MIRTAZAPIN [Concomitant]

REACTIONS (5)
  - PREMATURE LABOUR [None]
  - DRUG EXPOSURE DURING PREGNANCY [None]
  - DEPRESSION [None]
  - UNEVALUABLE EVENT [None]
  - CAESAREAN SECTION [None]
